FAERS Safety Report 12255554 (Version 1)
Quarter: 2016Q2

REPORT INFORMATION
  Report Type: Spontaneous
  Country: FR (occurrence: FR)
  Receive Date: 20160412
  Receipt Date: 20160412
  Transmission Date: 20160815
  Serious: Yes (Hospitalization)
  Sender: FDA-Public Use
  Company Number: FR-ACCORD-039552

PATIENT
  Age: 56 Year
  Sex: Male

DRUGS (6)
  1. OXALIPLATIN ACCORD [Suspect]
     Active Substance: OXALIPLATIN
     Indication: COLON CANCER METASTATIC
     Route: 042
     Dates: start: 20160113, end: 20160113
  2. FOLINIC ACID [Suspect]
     Active Substance: LEUCOVORIN
     Indication: COLON CANCER METASTATIC
     Dates: start: 20160113, end: 20160113
  3. FLUOROURACIL ACCORD [Suspect]
     Active Substance: FLUOROURACIL
     Indication: COLON CANCER METASTATIC
     Route: 042
     Dates: start: 20160113, end: 20160113
  4. METHYLPREDNISOLONE MYLAN [Suspect]
     Active Substance: METHYLPREDNISOLONE
     Indication: COLON CANCER METASTATIC
     Route: 042
     Dates: start: 20160113, end: 20160113
  5. ONDANSETRON ACCORD [Concomitant]
     Active Substance: ONDANSETRON
     Dates: start: 20160113, end: 20160113
  6. AVASTIN [Suspect]
     Active Substance: BEVACIZUMAB
     Indication: COLON CANCER METASTATIC
     Route: 042
     Dates: start: 20160113, end: 20160113

REACTIONS (2)
  - Fistula of small intestine [Recovered/Resolved with Sequelae]
  - Ileal perforation [Recovered/Resolved with Sequelae]

NARRATIVE: CASE EVENT DATE: 20160117
